FAERS Safety Report 18366769 (Version 3)
Quarter: 2022Q3

REPORT INFORMATION
  Report Type: Spontaneous
  Country: US (occurrence: None)
  Receive Date: 20201009
  Receipt Date: 20220801
  Transmission Date: 20221027
  Serious: Yes (Hospitalization, Other)
  Sender: FDA-Public Use
  Company Number: 2020SF27677

PATIENT
  Age: 26048 Day
  Sex: Male
  Weight: 109.8 kg

DRUGS (83)
  1. XIGDUO XR [Suspect]
     Active Substance: DAPAGLIFLOZIN PROPANEDIOL\METFORMIN HYDROCHLORIDE
     Indication: Type 2 diabetes mellitus
     Route: 048
     Dates: start: 20150401, end: 201509
  2. XIGDUO XR [Suspect]
     Active Substance: DAPAGLIFLOZIN PROPANEDIOL\METFORMIN HYDROCHLORIDE
     Indication: Weight decreased
     Route: 048
     Dates: start: 20150401, end: 201509
  3. XIGDUO XR [Suspect]
     Active Substance: DAPAGLIFLOZIN PROPANEDIOL\METFORMIN HYDROCHLORIDE
     Indication: Blood pressure abnormal
     Route: 048
     Dates: start: 20150401, end: 201509
  4. XIGDUO XR [Suspect]
     Active Substance: DAPAGLIFLOZIN PROPANEDIOL\METFORMIN HYDROCHLORIDE
     Indication: Type 2 diabetes mellitus
     Dosage: 10.0MG UNKNOWN
     Route: 048
     Dates: start: 2015
  5. XIGDUO XR [Suspect]
     Active Substance: DAPAGLIFLOZIN PROPANEDIOL\METFORMIN HYDROCHLORIDE
     Indication: Weight decreased
     Dosage: 10.0MG UNKNOWN
     Route: 048
     Dates: start: 2015
  6. XIGDUO XR [Suspect]
     Active Substance: DAPAGLIFLOZIN PROPANEDIOL\METFORMIN HYDROCHLORIDE
     Indication: Blood pressure abnormal
     Dosage: 10.0MG UNKNOWN
     Route: 048
     Dates: start: 2015
  7. XIGDUO XR [Suspect]
     Active Substance: DAPAGLIFLOZIN PROPANEDIOL\METFORMIN HYDROCHLORIDE
     Indication: Type 2 diabetes mellitus
     Dosage: UNKNOWN
     Route: 048
     Dates: start: 2015, end: 2018
  8. XIGDUO XR [Suspect]
     Active Substance: DAPAGLIFLOZIN PROPANEDIOL\METFORMIN HYDROCHLORIDE
     Indication: Weight decreased
     Dosage: UNKNOWN
     Route: 048
     Dates: start: 2015, end: 2018
  9. XIGDUO XR [Suspect]
     Active Substance: DAPAGLIFLOZIN PROPANEDIOL\METFORMIN HYDROCHLORIDE
     Indication: Blood pressure abnormal
     Dosage: UNKNOWN
     Route: 048
     Dates: start: 2015, end: 2018
  10. FARXIGA [Suspect]
     Active Substance: DAPAGLIFLOZIN PROPANEDIOL
     Indication: Type 2 diabetes mellitus
     Dosage: 10.0MG UNKNOWN
     Route: 048
     Dates: start: 2018, end: 2018
  11. ALBUTEROL SULFATE [Concomitant]
     Active Substance: ALBUTEROL SULFATE
  12. AMITRIPTYLINE [Concomitant]
     Active Substance: AMITRIPTYLINE
  13. AZITHROMYCIN [Concomitant]
     Active Substance: AZITHROMYCIN
  14. AMMONIUM CHLORIDE\DEXTROMETHORPHAN\SODIUM CITRATE [Concomitant]
     Active Substance: AMMONIUM CHLORIDE\DEXTROMETHORPHAN\SODIUM CITRATE
  15. CHOLINE [Concomitant]
     Active Substance: CHOLINE
  16. FUROSEMIDE [Concomitant]
     Active Substance: FUROSEMIDE
  17. HYDROCODONE [Concomitant]
     Active Substance: HYDROCODONE
  18. ACETAMINOPHEN [Concomitant]
     Active Substance: ACETAMINOPHEN
  19. JANUMET [Concomitant]
     Active Substance: METFORMIN HYDROCHLORIDE\SITAGLIPTIN PHOSPHATE
     Indication: Diabetes mellitus
     Dosage: 50-1000MG
     Dates: start: 2015
  20. JANUVIA [Concomitant]
     Active Substance: SITAGLIPTIN PHOSPHATE
     Indication: Diabetes mellitus
  21. LEVOCETIRIZINE [Concomitant]
     Active Substance: LEVOCETIRIZINE
  22. LOSARTAN [Concomitant]
     Active Substance: LOSARTAN
  23. MELOXICAM [Concomitant]
     Active Substance: MELOXICAM
  24. METFORMIN [Concomitant]
     Active Substance: METFORMIN HYDROCHLORIDE
     Indication: Diabetes mellitus
     Dosage: 1000.0MG UNKNOWN
     Dates: start: 2012
  25. METANX [Concomitant]
     Active Substance: LEVOMEFOLATE CALCIUM\METHYLCOBALAMIN\PYRIDOXAL PHOSPHATE ANHYDROUS
  26. PANTOPRAZOLE [Concomitant]
     Active Substance: PANTOPRAZOLE
  27. PRAMIPEXOLE [Concomitant]
     Active Substance: PRAMIPEXOLE
  28. PRAVASTATIN [Concomitant]
     Active Substance: PRAVASTATIN
  29. ROPINIROLE [Concomitant]
     Active Substance: ROPINIROLE
  30. TOPROL XL [Concomitant]
     Active Substance: METOPROLOL SUCCINATE
  31. TRULICITY [Concomitant]
     Active Substance: DULAGLUTIDE
     Indication: Diabetes mellitus
     Dosage: 1.5MG UNKNOWN
     Dates: start: 2015
  32. VITAMIN D3 [Concomitant]
     Active Substance: CHOLECALCIFEROL
  33. VITAMIN E [Concomitant]
     Active Substance: .ALPHA.-TOCOPHEROL
  34. CHROMIUM PICOLINATE [Concomitant]
     Active Substance: CHROMIUM PICOLINATE
  35. CYANOCOBALAMIN [Concomitant]
     Active Substance: CYANOCOBALAMIN
  36. FLUOROURACIL [Concomitant]
     Active Substance: FLUOROURACIL
  37. HUMALOG [Concomitant]
     Active Substance: INSULIN LISPRO
     Indication: Diabetes mellitus
     Dosage: 72-25ML
     Dates: start: 2013, end: 2020
  38. LEVEMIR [Concomitant]
     Active Substance: INSULIN DETEMIR
  39. TERBINAFINE HYDROCHLORIDE [Concomitant]
     Active Substance: TERBINAFINE HYDROCHLORIDE
  40. ASPIRIN [Concomitant]
     Active Substance: ASPIRIN
  41. MELATONIN [Concomitant]
     Active Substance: MELATONIN
  42. ACETAMINOPHEN\OXYCODONE HYDROCHLORIDE [Concomitant]
     Active Substance: ACETAMINOPHEN\OXYCODONE HYDROCHLORIDE
  43. ONDANSETRON HYDROCHLORIDE [Concomitant]
     Active Substance: ONDANSETRON HYDROCHLORIDE
  44. CEPHALEXIN [Concomitant]
     Active Substance: CEPHALEXIN
  45. DOXYCYCLINE HYCLATE [Concomitant]
     Active Substance: DOXYCYCLINE HYCLATE
  46. AMOXICILLIN [Concomitant]
     Active Substance: AMOXICILLIN
  47. INSULIN NOS [Concomitant]
     Active Substance: INSULIN NOS
  48. VICTOZA [Concomitant]
     Active Substance: LIRAGLUTIDE
     Indication: Diabetes mellitus
     Dosage: .6MG
     Dates: start: 2016, end: 2017
  49. CLINDAMYCIN [Concomitant]
     Active Substance: CLINDAMYCIN
  50. BETAMETHASONE\CLOTRIMAZOLE [Concomitant]
     Active Substance: BETAMETHASONE\CLOTRIMAZOLE
  51. JUBLIA [Concomitant]
     Active Substance: EFINACONAZOLE
  52. NOVOLOG [Concomitant]
     Active Substance: INSULIN ASPART
  53. MUPIROCIN [Concomitant]
     Active Substance: MUPIROCIN
  54. KENALOG [Concomitant]
     Active Substance: TRIAMCINOLONE ACETONIDE
  55. DEXAMETHASONE [Concomitant]
     Active Substance: DEXAMETHASONE
  56. ZOSTAVAX [Concomitant]
     Active Substance: VARICELLA-ZOSTER VIRUS STRAIN OKA/MERCK LIVE ANTIGEN
  57. PREVNAR [Concomitant]
     Active Substance: PNEUMOCOCCAL 7-VALENT CONJUGATE VACCINE (DIPHTHERIA CRM197 PROTEIN)
  58. NITROGLYCERIN [Concomitant]
     Active Substance: NITROGLYCERIN
  59. OMEGA-3 ACID ETHYL ESTHER [Concomitant]
  60. FLUTICASONE PROPIONATE [Concomitant]
     Active Substance: FLUTICASONE PROPIONATE
  61. CIPROFLOXACIN [Concomitant]
     Active Substance: CIPROFLOXACIN
  62. UNSPECIFIED INGREDIENT [Concomitant]
     Active Substance: UNSPECIFIED INGREDIENT
  63. BRILINTA [Concomitant]
     Active Substance: TICAGRELOR
  64. TIZANIDINE HYDROCHLORIDE [Concomitant]
     Active Substance: TIZANIDINE HYDROCHLORIDE
  65. LANTUS SOLOSTAR [Concomitant]
     Active Substance: INSULIN GLARGINE
     Indication: Diabetes mellitus
     Dosage: 100.0ML UNKNOWN
     Dates: start: 2012
  66. BYETTA [Concomitant]
     Active Substance: EXENATIDE
     Dosage: 10.0MG UNKNOWN
     Dates: start: 2018
  67. VITAMIN C [Concomitant]
     Active Substance: ASCORBIC ACID
  68. ROSUVASTATIN [Concomitant]
     Active Substance: ROSUVASTATIN
  69. VITAMIN B12 [Concomitant]
     Active Substance: CYANOCOBALAMIN
  70. ALEVE [Concomitant]
     Active Substance: NAPROXEN SODIUM
     Route: 065
     Dates: start: 20130219
  71. GABAPENTIN [Concomitant]
     Active Substance: GABAPENTIN
  72. DIETARY SUPPLEMENT [Concomitant]
     Active Substance: DIETARY SUPPLEMENT
  73. LEVOFLOXACIN [Concomitant]
     Active Substance: LEVOFLOXACIN
  74. MINOCYCLINE [Concomitant]
     Active Substance: MINOCYCLINE HYDROCHLORIDE
  75. VENEFLEX [Concomitant]
  76. IOPHEN-C [Concomitant]
  77. DIAZEPAM [Concomitant]
     Active Substance: DIAZEPAM
  78. DOCUSATE SODIUM [Concomitant]
     Active Substance: DOCUSATE SODIUM
  79. XARELTO [Concomitant]
     Active Substance: RIVAROXABAN
  80. SHINGRIX [Concomitant]
     Active Substance: RECOMBINANT VARICELLA ZOSTER VIRUS (VZV) GLYCOPROTEIN E
  81. TRIAZOLAM [Concomitant]
     Active Substance: TRIAZOLAM
  82. MONTELUKAST [Concomitant]
     Active Substance: MONTELUKAST SODIUM
  83. GLIPIZIDE [Concomitant]
     Active Substance: GLIPIZIDE
     Indication: Diabetes mellitus
     Dosage: 5.0MG UNKNOWN
     Dates: start: 2013

REACTIONS (7)
  - Fournier^s gangrene [Unknown]
  - Sepsis [Unknown]
  - Necrotising fasciitis [Unknown]
  - Necrotising soft tissue infection [Unknown]
  - Hypotension [Unknown]
  - Cellulitis [Unknown]
  - Groin abscess [Unknown]

NARRATIVE: CASE EVENT DATE: 20150908
